FAERS Safety Report 8318540-1 (Version None)
Quarter: 2012Q2

REPORT INFORMATION
  Report Type: 
  Country: None (occurrence: None)
  Receive Date: 20120427
  Receipt Date: 20120423
  Transmission Date: 20120825
  Serious: Yes (Other)
  Sender: FDA-Public Use
  Company Number: US-GLAXOSMITHKLINE-A0968099A

PATIENT
  Age: 46 Year
  Sex: Female

DRUGS (2)
  1. ALLI [Suspect]
     Indication: PRODUCT USED FOR UNKNOWN INDICATION
     Route: 048
     Dates: start: 20120118, end: 20120301
  2. CIPROFLOXACIN [Concomitant]
     Indication: KIDNEY INFECTION

REACTIONS (13)
  - HEADACHE [None]
  - RENAL PAIN [None]
  - BLADDER DISORDER [None]
  - BLADDER PAIN [None]
  - VOMITING [None]
  - PRESYNCOPE [None]
  - MALAISE [None]
  - NEPHROLITHIASIS [None]
  - HAEMORRHAGE [None]
  - BLOOD URINE PRESENT [None]
  - KIDNEY INFECTION [None]
  - BACK PAIN [None]
  - PAIN [None]
